FAERS Safety Report 9437512 (Version 1)
Quarter: 2013Q3

REPORT INFORMATION
  Report Type: Spontaneous
  Country: US (occurrence: US)
  Receive Date: 20130802
  Receipt Date: 20130802
  Transmission Date: 20140515
  Serious: No
  Sender: FDA-Public Use
  Company Number: US-PFIZER INC-2013222498

PATIENT
  Age: 78 Year
  Sex: Male

DRUGS (1)
  1. SUTENT [Suspect]
     Indication: PROSTATE CANCER
     Dosage: 50 MG, DAILY
     Dates: start: 20130523

REACTIONS (3)
  - Disease progression [Unknown]
  - Prostate cancer [Unknown]
  - Off label use [Unknown]
